FAERS Safety Report 6671638-6 (Version None)
Quarter: 2010Q2

REPORT INFORMATION
  Report Type: 
  Country: None (occurrence: None)
  Receive Date: 20100407
  Receipt Date: 20100331
  Transmission Date: 20101027
  Serious: Yes (Hospitalization)
  Sender: FDA-Public Use
  Company Number: IT-ASTRAZENECA-2010SE07026

PATIENT
  Age: 25683 Day
  Sex: Female
  Weight: 56 kg

DRUGS (6)
  1. FASLODEX [Suspect]
     Indication: BREAST CANCER METASTATIC
     Dosage: 250 MG ON DAY 1,14 AND 28, THEN MAINTENANCE DOSE 250 MG MONTHLY
     Route: 030
     Dates: start: 20100127
  2. LAPATINIB CODE NOT BROKEN [Suspect]
     Indication: BREAST CANCER METASTATIC
     Dosage: DAILY
     Route: 048
     Dates: start: 20100127, end: 20100213
  3. LAPATINIB CODE NOT BROKEN [Suspect]
     Dosage: DAILY
     Route: 048
     Dates: start: 20100324
  4. XANAX [Concomitant]
     Indication: DEPRESSION
     Route: 048
     Dates: start: 20091115
  5. ENAPREN [Concomitant]
     Indication: HYPERTENSION
     Route: 048
     Dates: start: 19931115
  6. TENORMIN [Concomitant]
     Indication: HYPERTENSION
     Route: 048
     Dates: start: 19931115

REACTIONS (4)
  - DIARRHOEA [None]
  - HYPERPYREXIA [None]
  - HYPOKALAEMIA [None]
  - VOMITING [None]
